FAERS Safety Report 25299044 (Version 2)
Quarter: 2025Q2

REPORT INFORMATION
  Report Type: Spontaneous
  Country: IT (occurrence: IT)
  Receive Date: 20250512
  Receipt Date: 20250609
  Transmission Date: 20250717
  Serious: No
  Sender: AUROBINDO
  Company Number: IT-MLMSERVICE-20250423-PI486025-00079-1

PATIENT
  Age: 26 Year
  Sex: Male
  Weight: 77 kg

DRUGS (17)
  1. CARBAMAZEPINE [Interacting]
     Active Substance: CARBAMAZEPINE
     Indication: Partial seizures
     Route: 065
  2. VALPROATE SODIUM [Interacting]
     Active Substance: VALPROATE SODIUM
     Indication: Partial seizures
     Route: 065
  3. DEXAMETHASONE [Interacting]
     Active Substance: DEXAMETHASONE
     Indication: Adrenogenital syndrome
     Dosage: 0.25 MILLIGRAM, ONCE A DAY (BEDTIME)
     Route: 065
     Dates: end: 2014
  4. DEXAMETHASONE [Interacting]
     Active Substance: DEXAMETHASONE
     Dosage: 0.5 MILLIGRAM, ONCE A DAY (BEDTIME)
     Route: 065
     Dates: start: 2014
  5. DEXAMETHASONE [Interacting]
     Active Substance: DEXAMETHASONE
     Dosage: 0.75 MILLIGRAM, ONCE A DAY (BEDTIME)
     Route: 065
     Dates: start: 2014
  6. PERAMPANEL [Concomitant]
     Active Substance: PERAMPANEL
     Indication: Partial seizures
     Route: 065
  7. INDAPAMIDE [Concomitant]
     Active Substance: INDAPAMIDE
     Indication: Hypertension
     Route: 065
  8. AMLODIPINE [Concomitant]
     Active Substance: AMLODIPINE BESYLATE
     Indication: Hypertension
     Dosage: 10 MILLIGRAM, ONCE A DAY (IN THE MORNING)
     Route: 048
  9. CLONIDINE [Concomitant]
     Active Substance: CLONIDINE
     Indication: Hypertension
     Dosage: 300 MILLIGRAM, ONCE A DAY (IN THE EVENING)
     Route: 065
  10. RAMIPRIL [Concomitant]
     Active Substance: RAMIPRIL
     Indication: Hypertension
     Route: 048
  11. LERCANIDIPINE [Concomitant]
     Active Substance: LERCANIDIPINE
     Indication: Hypertension
     Route: 065
  12. CANRENONE [Concomitant]
     Active Substance: CANRENONE
     Indication: Hypertension
     Route: 065
  13. CANRENONE [Concomitant]
     Active Substance: CANRENONE
     Dosage: 200 MILLIGRAM, ONCE A DAY (MORNING)
     Route: 065
  14. CANRENONE [Concomitant]
     Active Substance: CANRENONE
     Dosage: 100 MILLIGRAM, ONCE A DAY (AFTERNOON)
     Route: 065
  15. HYDROCORTISONE [Concomitant]
     Active Substance: HYDROCORTISONE
     Indication: Product used for unknown indication
     Dosage: 20 MILLIGRAM, ONCE A DAY
     Route: 065
  16. HYDROCORTISONE [Concomitant]
     Active Substance: HYDROCORTISONE
     Route: 065
  17. LISINOPRIL [Concomitant]
     Active Substance: LISINOPRIL
     Indication: Hypertension
     Route: 065

REACTIONS (5)
  - Drug interaction [Recovered/Resolved]
  - Azoospermia [Recovered/Resolved]
  - Hypertension [Recovered/Resolved]
  - Adrenomegaly [Recovered/Resolved]
  - Therapeutic product effect decreased [Recovered/Resolved]

NARRATIVE: CASE EVENT DATE: 20140101
